FAERS Safety Report 23068860 (Version 1)
Quarter: 2023Q4

REPORT INFORMATION
  Report Type: Spontaneous
  Country: US (occurrence: None)
  Receive Date: 20231014
  Receipt Date: 20231014
  Transmission Date: 20240109
  Serious: Yes (Hospitalization)
  Sender: FDA-Public Use
  Company Number: None

PATIENT
  Age: 62 Year
  Sex: Female
  Weight: 53.6 kg

DRUGS (2)
  1. ERBITUX [Suspect]
     Active Substance: CETUXIMAB
     Dates: end: 20230810
  2. TAXOTERE [Suspect]
     Active Substance: DOCETAXEL
     Dates: end: 20230810

REACTIONS (6)
  - Dermatitis acneiform [None]
  - Radiation skin injury [None]
  - Dehydration [None]
  - Asthenia [None]
  - Malaise [None]
  - Hypokalaemia [None]

NARRATIVE: CASE EVENT DATE: 20230824
